FAERS Safety Report 8226154-7 (Version None)
Quarter: 2012Q1

REPORT INFORMATION
  Report Type: 
  Country: None (occurrence: None)
  Receive Date: 20120319
  Receipt Date: 20120301
  Transmission Date: 20120608
  Serious: Yes (Hospitalization)
  Sender: FDA-Public Use
  Company Number: TCI2012A00417

PATIENT
  Age: 68 Year
  Sex: Male

DRUGS (2)
  1. GLUFAST (MITIGLINIDE CALCIUM) [Suspect]
     Indication: TYPE 2 DIABETES MELLITUS
     Dosage: 20 MG (10 MG, 2 IN 1 D) PER ORAL
     Route: 048
     Dates: start: 20100628, end: 20110515
  2. ACTOS [Suspect]
     Indication: TYPE 2 DIABETES MELLITUS
     Dosage: 15 MG (15 MG, 1 D) PER ORAL
     Route: 048
     Dates: start: 20100628, end: 20110515

REACTIONS (4)
  - PROCEDURAL COMPLICATION [None]
  - LARGE INTESTINE PERFORATION [None]
  - RECTAL CANCER [None]
  - INFECTIOUS PERITONITIS [None]
